FAERS Safety Report 4524439-9 (Version None)
Quarter: 2004Q4

REPORT INFORMATION
  Report Type: 
  Country: None (occurrence: None)
  Receive Date: 20041116
  Receipt Date: 20040805
  Transmission Date: 20050328
  Serious: No
  Sender: FDA-Public Use
  Company Number: PHEH2004US08491

PATIENT
  Age: 80 Year
  Sex: Male

DRUGS (3)
  1. GLEEVEC [Suspect]
     Indication: CHRONIC MYELOID LEUKAEMIA
     Dosage: 400 MG, QD, ORAL
     Route: 048
     Dates: start: 20010101
  2. BEXTRA (VALDCOXIB) [Concomitant]
  3. PREVACID [Concomitant]

REACTIONS (2)
  - MUSCLE ATROPHY [None]
  - MUSCLE CRAMP [None]
